FAERS Safety Report 6287125-3 (Version None)
Quarter: 2009Q3

REPORT INFORMATION
  Report Type: 
  Country: None (occurrence: None)
  Receive Date: 20090724
  Receipt Date: 20090609
  Transmission Date: 20100115
  Serious: Yes (Other)
  Sender: FDA-Public Use
  Company Number: ALA_00332_2009

PATIENT
  Age: 15 Year
  Sex: Male
  Weight: 46.5 kg

DRUGS (3)
  1. MESALAMINE [Suspect]
     Indication: PROCTOCOLITIS
     Dosage: (3 G QD)
  2. AZATHIOPRINE [Concomitant]
  3. PREDNISOLONE [Concomitant]

REACTIONS (7)
  - ANAEMIA [None]
  - ERYTHEMA NODOSUM [None]
  - PALLOR [None]
  - PYREXIA [None]
  - RENAL IMPAIRMENT [None]
  - TUBULOINTERSTITIAL NEPHRITIS [None]
  - WEIGHT DECREASED [None]
